FAERS Safety Report 9009684 (Version 1)
Quarter: 2013Q1

REPORT INFORMATION
  Report Type: Spontaneous
  Country: CA (occurrence: CA)
  Receive Date: 20130112
  Receipt Date: 20130112
  Transmission Date: 20140127
  Serious: Yes (Hospitalization, Other)
  Sender: FDA-Public Use
  Company Number: CA-AMGEN-CANSP2013001111

PATIENT
  Age: 84 Year
  Sex: Female
  Weight: 50.91 kg

DRUGS (1)
  1. PROLIA [Suspect]
     Indication: OSTEOPOROSIS
     Dosage: UNK
     Dates: start: 20120215

REACTIONS (4)
  - Fall [Unknown]
  - Wheelchair user [Unknown]
  - General physical health deterioration [Unknown]
  - Confusional state [Unknown]
